FAERS Safety Report 24568959 (Version 2)
Quarter: 2025Q3

REPORT INFORMATION
  Report Type: Spontaneous
  Country: EU (occurrence: EU)
  Receive Date: 20241031
  Receipt Date: 20250907
  Transmission Date: 20251020
  Serious: Yes (Other)
  Sender: RECORDATI
  Company Number: EU-RECORDATI RARE DISEASE INC.-2024008350

PATIENT
  Age: 74 Year
  Sex: Female

DRUGS (3)
  1. ISTURISA [Suspect]
     Active Substance: OSILODROSTAT PHOSPHATE
     Indication: Pituitary-dependent Cushing^s syndrome
     Dates: start: 20231029, end: 20240301
  2. PAROXETINE [Concomitant]
     Active Substance: PAROXETINE
     Indication: Schizophrenia
  3. PAROXETINE [Concomitant]
     Active Substance: PAROXETINE
     Indication: Depression

REACTIONS (3)
  - Suicide attempt [Recovered/Resolved]
  - Schizophrenia [Recovered/Resolved]
  - Depression [Recovered/Resolved]

NARRATIVE: CASE EVENT DATE: 20231101
